FAERS Safety Report 5575875-3 (Version None)
Quarter: 2007Q4

REPORT INFORMATION
  Report Type: 
  Country: None (occurrence: None)
  Receive Date: 20071130
  Receipt Date: 20070816
  Transmission Date: 20080405
  Serious: No
  Sender: FDA-Public Use
  Company Number: US200707007108

PATIENT
  Age: 66 Year
  Sex: Male

DRUGS (2)
  1. BYETTA [Suspect]
     Indication: TYPE 2 DIABETES MELLITUS
     Dosage: 5 UG, 2/D, SUBCUTANEOUS
     Route: 058
     Dates: start: 20070726
  2. METFORMIN HCL [Concomitant]

REACTIONS (10)
  - ABDOMINAL DISTENSION [None]
  - ABDOMINAL PAIN UPPER [None]
  - DECREASED APPETITE [None]
  - FLUSHING [None]
  - MALAISE [None]
  - NAUSEA [None]
  - RETCHING [None]
  - STOMACH DISCOMFORT [None]
  - VOMITING [None]
  - WEIGHT DECREASED [None]
